FAERS Safety Report 6573084-2 (Version None)
Quarter: 2010Q1

REPORT INFORMATION
  Report Type: 
  Country: None (occurrence: None)
  Receive Date: 20100208
  Receipt Date: 20100128
  Transmission Date: 20100710
  Serious: Yes (Other)
  Sender: FDA-Public Use
  Company Number: DE-BAYER-201014185GPV

PATIENT
  Sex: Female
  Weight: 70 kg

DRUGS (1)
  1. BETAFERON [Suspect]
     Indication: MULTIPLE SCLEROSIS
     Dosage: AS USED: 1 ML
     Dates: end: 20070701

REACTIONS (2)
  - CORONARY ARTERY DILATATION [None]
  - PERIPHERAL EMBOLISM [None]
